APPROVED DRUG PRODUCT: CLOMIPRAMINE HYDROCHLORIDE
Active Ingredient: CLOMIPRAMINE HYDROCHLORIDE
Strength: 75MG
Dosage Form/Route: CAPSULE;ORAL
Application: A074600 | Product #003
Applicant: WATSON LABORATORIES INC
Approved: Nov 27, 1996 | RLD: No | RS: No | Type: DISCN